FAERS Safety Report 8972794 (Version 1)
Quarter: 2012Q4

REPORT INFORMATION
  Report Type: 
  Country: FR (occurrence: FR)
  Receive Date: 20121218
  Receipt Date: 20121218
  Transmission Date: 20130627
  Serious: Yes (Hospitalization, Disabling, Other)
  Sender: FDA-Public Use
  Company Number: FR-009507513-1012FRA00163

PATIENT
  Age: 60 Year
  Sex: Male
  Weight: 90 kg

DRUGS (14)
  1. JANUVIA [Suspect]
     Indication: TYPE 2 DIABETES MELLITUS
     Dosage: 7x100
     Route: 048
     Dates: start: 20101030, end: 20101030
  2. JANUVIA [Suspect]
     Dosage: 100 mg, qd
     Route: 048
     Dates: end: 20101029
  3. COTAREG [Suspect]
     Dosage: 7x160/12.5
     Route: 048
     Dates: start: 20101030, end: 20101030
  4. COTAREG [Suspect]
     Dosage: 160/12.5
     Route: 048
     Dates: end: 20101029
  5. AMAREL [Suspect]
     Indication: TYPE 2 DIABETES MELLITUS
     Dosage: 7x2
     Route: 048
     Dates: start: 20101030, end: 20101030
  6. AMAREL [Suspect]
     Dosage: 2 mg, qd
     Route: 048
     Dates: end: 20101029
  7. GLUCOPHAGE [Suspect]
     Indication: TYPE 2 DIABETES MELLITUS
     Dosage: 1x7
     Route: 048
     Dates: start: 20101030, end: 20101030
  8. GLUCOPHAGE [Suspect]
     Dosage: 1 g, tid
     Route: 048
     Dates: end: 20101029
  9. DEPAKINE CHRONO [Suspect]
     Dosage: 500x7
     Route: 048
     Dates: start: 20101030, end: 20101030
  10. DEPAKINE CHRONO [Suspect]
     Dosage: 500 mg, bid
     Route: 048
     Dates: end: 20101029
  11. RIVOTRIL [Suspect]
     Dosage: 70 DF, Once
     Route: 048
     Dates: start: 20101030, end: 20101030
  12. RIVOTRIL [Suspect]
     Dosage: 10 DF, qd
     Route: 048
     Dates: end: 20101029
  13. VOLTAREN [Concomitant]
     Dosage: 100 mg, qd
  14. LIORAM [Concomitant]

REACTIONS (11)
  - Intentional overdose [Recovered/Resolved]
  - Altered state of consciousness [Recovered/Resolved]
  - Renal failure acute [Recovered/Resolved with Sequelae]
  - Hypoglycaemia [Recovered/Resolved]
  - Generalised oedema [Recovered/Resolved]
  - Weight increased [Recovered/Resolved]
  - Pain [Unknown]
  - Renal cell carcinoma [Unknown]
  - Single functional kidney [Unknown]
  - Disorientation [Unknown]
  - Psychomotor retardation [Unknown]
